FAERS Safety Report 12724771 (Version 1)
Quarter: 2016Q3

REPORT INFORMATION
  Report Type: Spontaneous
  Country: ES (occurrence: ES)
  Receive Date: 20160908
  Receipt Date: 20160908
  Transmission Date: 20161109
  Serious: Yes (Other)
  Sender: FDA-Public Use
  Company Number: ES-VIFOR (INTERNATIONAL) INC.-VIT-2016-04060

PATIENT
  Age: 90 Year
  Sex: Male

DRUGS (1)
  1. VELPHORO [Suspect]
     Active Substance: FERRIC OXYHYDROXIDE
     Indication: HYPERPHOSPHATAEMIA
     Route: 048
     Dates: start: 2016, end: 20160609

REACTIONS (1)
  - Pemphigus [Unknown]

NARRATIVE: CASE EVENT DATE: 20160612
